FAERS Safety Report 10055243 (Version 1)
Quarter: 2014Q2

REPORT INFORMATION
  Report Type: Spontaneous
  Country: DE (occurrence: DE)
  Receive Date: 20140403
  Receipt Date: 20140403
  Transmission Date: 20141212
  Serious: Yes (Other)
  Sender: FDA-Public Use
  Company Number: GXKR2014DE001469

PATIENT
  Sex: Female

DRUGS (1)
  1. BELLA HEXAL [Suspect]
     Route: 048

REACTIONS (1)
  - Pulmonary embolism [Unknown]
